FAERS Safety Report 22059107 (Version 1)
Quarter: 2023Q1

REPORT INFORMATION
  Report Type: Spontaneous
  Country: US (occurrence: US)
  Receive Date: 20230303
  Receipt Date: 20230303
  Transmission Date: 20230418
  Serious: Yes (Hospitalization)
  Sender: FDA-Public Use
  Company Number: US-FreseniusKabi-FK202302564

PATIENT
  Age: 67 Year
  Sex: Male

DRUGS (10)
  1. LEUCOVORIN CALCIUM [Suspect]
     Active Substance: LEUCOVORIN CALCIUM
     Indication: Oesophageal adenocarcinoma
     Dosage: UNIT DOSE - 400 MG/M2, DAY 1, Q14D
     Route: 042
     Dates: start: 20221205
  2. LEUCOVORIN CALCIUM [Suspect]
     Active Substance: LEUCOVORIN CALCIUM
     Dosage: UNIT DOSE - 680 MG/M2?RECENT DOSE PRIOR TO SAE ONSET WAS 680 MG/M2 IN CYCLE 6 ON 14/FEB/2023
     Route: 042
     Dates: start: 20230214
  3. FLUOROURACIL [Suspect]
     Active Substance: FLUOROURACIL
     Indication: Oesophageal adenocarcinoma
     Dosage: UNIT DOSE - 400 MG/M2, DAY 1, 14D
     Route: 042
     Dates: start: 20221205
  4. FLUOROURACIL [Suspect]
     Active Substance: FLUOROURACIL
     Dosage: UNIT DOSE - 680 MG/M2?RECENT DOSE PRIOR TO SAE ONSET WAS 680 MG/M2 IN CYCLE 6 ON 14/FEB/2023
     Route: 042
     Dates: start: 20230214
  5. OXALIPLATIN [Suspect]
     Active Substance: OXALIPLATIN
     Indication: Oesophageal adenocarcinoma
     Dosage: UNIT DOSE - 70 MG/M2, DAY 1
     Route: 042
     Dates: start: 20221205
  6. OXALIPLATIN [Suspect]
     Active Substance: OXALIPLATIN
     Dosage: UNIT DOSE - 117.5 MG/M2?RECENT DOSE PRIOR TO SAE ONSET WAS 117.5 MG/M2 IN CYCLE 6 ON 14/FEB/2023
     Route: 042
     Dates: start: 20230214
  7. DKN-01 [Suspect]
     Active Substance: DKN-01
     Indication: Oesophageal adenocarcinoma
     Dosage: UNIT DOSE - 400 MG
     Route: 042
     Dates: start: 20221205
  8. DKN-01 [Suspect]
     Active Substance: DKN-01
     Dosage: UNIT DOSE - 400 MG?RECENT DOSE PRIOR TO SAE ONSET WAS 400 MG IN CYCLE 6 ON14/FEB/2023
     Route: 042
     Dates: start: 20230214
  9. TISLELIZUMAB [Suspect]
     Active Substance: TISLELIZUMAB
     Indication: Oesophageal adenocarcinoma
     Dosage: UNIT DOSE - 400 MG
     Route: 042
     Dates: start: 20221205
  10. TISLELIZUMAB [Suspect]
     Active Substance: TISLELIZUMAB
     Dosage: UNIT DOSE - 400 MG?RECENT DOSE PRIOR TO SAE ONSET WAS 400 MG ON 17/JAN/2023
     Route: 042
     Dates: start: 20230117

REACTIONS (1)
  - Pyrexia [Not Recovered/Not Resolved]

NARRATIVE: CASE EVENT DATE: 20230214
